FAERS Safety Report 25817477 (Version 1)
Quarter: 2025Q3

REPORT INFORMATION
  Report Type: Spontaneous
  Country: US (occurrence: None)
  Receive Date: 20250917
  Receipt Date: 20250917
  Transmission Date: 20251021
  Serious: No
  Sender: FDA-CTU
  Company Number: None

PATIENT
  Age: 31 Year
  Sex: Male
  Weight: 83.91 kg

DRUGS (12)
  1. SODIUM CHLORIDE [Suspect]
     Active Substance: SODIUM CHLORIDE
  2. xyphosa [Concomitant]
  3. CALCIUM ACETATE [Concomitant]
     Active Substance: CALCIUM ACETATE
  4. sevelamir [Concomitant]
  5. MODAFINIL [Concomitant]
     Active Substance: MODAFINIL
  6. GABAPENTIN [Concomitant]
     Active Substance: GABAPENTIN
  7. TYLENOL [Concomitant]
     Active Substance: ACETAMINOPHEN
  8. carisoprol [Concomitant]
  9. ELIQUIS [Concomitant]
     Active Substance: APIXABAN
  10. EMSAM [Concomitant]
     Active Substance: SELEGILINE
  11. thimine [Concomitant]
  12. ASCORBIC ACID\BIOTIN\CALCIUM PANTOTHENATE\CYANOCOBALAMIN\FOLIC ACID\NI [Concomitant]
     Active Substance: ASCORBIC ACID\BIOTIN\CALCIUM PANTOTHENATE\CYANOCOBALAMIN\FOLIC ACID\NIACINAMIDE\PYRIDOXINE HYDROCHLO

REACTIONS (6)
  - Dialysis [None]
  - Wrong technique in product usage process [None]
  - Suspected product tampering [None]
  - Tachycardia [None]
  - Off label use [None]
  - Product administration error [None]

NARRATIVE: CASE EVENT DATE: 20250916
